FAERS Safety Report 15114604 (Version 1)
Quarter: 2018Q3

REPORT INFORMATION
  Report Type: Spontaneous
  Country: NL (occurrence: NL)
  Receive Date: 20180706
  Receipt Date: 20180706
  Transmission Date: 20181010
  Serious: Yes (Hospitalization, Other)
  Sender: FDA-Public Use
  Company Number: NL-AUROBINDO-AUR-APL-2017-08199

PATIENT
  Sex: Male
  Weight: 2.84 kg

DRUGS (1)
  1. CITALOPRAM [Suspect]
     Active Substance: CITALOPRAM HYDROBROMIDE
     Indication: ANTIDEPRESSANT THERAPY
     Dosage: 40 MILLIGRAM, DAILY
     Route: 064

REACTIONS (8)
  - Hypotonia [Recovered/Resolved]
  - Sleep disorder [Recovered/Resolved]
  - Foetal exposure during pregnancy [Unknown]
  - Neonatal hypoxia [Recovered/Resolved]
  - Drug withdrawal syndrome [Unknown]
  - Irregular breathing [Recovered/Resolved]
  - Maternal exposure during breast feeding [Unknown]
  - Hypertonia [Recovered/Resolved]
